FAERS Safety Report 10394051 (Version 3)
Quarter: 2014Q3

REPORT INFORMATION
  Report Type: Spontaneous
  Country: JP (occurrence: JP)
  Receive Date: 20140819
  Receipt Date: 20140828
  Transmission Date: 20150326
  Serious: Yes (Hospitalization)
  Sender: FDA-Public Use
  Company Number: JP-PFIZER INC-2014231001

PATIENT
  Age: 69 Year
  Sex: Male

DRUGS (6)
  1. UNASYN [Suspect]
     Active Substance: AMPICILLIN SODIUM\SULBACTAM SODIUM
     Dosage: 6 G, 1X/DAY
     Route: 041
     Dates: start: 20140713, end: 20140716
  2. UNASYN [Suspect]
     Active Substance: AMPICILLIN SODIUM\SULBACTAM SODIUM
     Dosage: 3 G, 1X/DAY
     Route: 041
     Dates: start: 20140712, end: 20140712
  3. UNASYN [Suspect]
     Active Substance: AMPICILLIN SODIUM\SULBACTAM SODIUM
     Dosage: 3 G, 1X/DAY
     Route: 041
     Dates: start: 20140718, end: 20140719
  4. CELECOX [Suspect]
     Active Substance: CELECOXIB
     Indication: PROCEDURAL PAIN
     Dosage: 400 MG, 1X/DAY (STRENGTH 100MG)
     Route: 048
     Dates: start: 20140717, end: 20140719
  5. UNASYN [Suspect]
     Active Substance: AMPICILLIN SODIUM\SULBACTAM SODIUM
     Dosage: 3 G, 1X/DAY
     Route: 041
     Dates: start: 20140717, end: 20140717
  6. CEFAMEZIN [Concomitant]
     Active Substance: CEFAZOLIN
     Dosage: 1 G, UNK
     Dates: start: 20140717, end: 20140717

REACTIONS (1)
  - Liver disorder [Recovered/Resolved]

NARRATIVE: CASE EVENT DATE: 20140717
